FAERS Safety Report 7725223-5 (Version None)
Quarter: 2011Q3

REPORT INFORMATION
  Report Type: 
  Country: None (occurrence: None)
  Receive Date: 20110901
  Receipt Date: 20110829
  Transmission Date: 20111222
  Serious: Yes (Hospitalization, Other)
  Sender: FDA-Public Use
  Company Number: US-AMGEN-USASP2011044355

PATIENT
  Age: 75 Year
  Sex: Male
  Weight: 90.703 kg

DRUGS (4)
  1. PROCRIT [Suspect]
     Indication: ANAEMIA
     Dosage: 3000 IU, UNK
     Route: 058
     Dates: start: 20100101, end: 20100101
  2. PROCRIT [Suspect]
     Dosage: 3000 IU, UNK
     Route: 058
     Dates: start: 20110101
  3. BUSPIRONE [Concomitant]
     Dosage: UNK
  4. CYMBALTA [Concomitant]
     Indication: DEPRESSION
     Dosage: UNK
     Dates: start: 20070101

REACTIONS (4)
  - RECTAL CANCER [None]
  - RETCHING [None]
  - VOMITING [None]
  - ASTHENIA [None]
